FAERS Safety Report 23002356 (Version 3)
Quarter: 2023Q4

REPORT INFORMATION
  Report Type: Spontaneous
  Country: JP (occurrence: JP)
  Receive Date: 20230928
  Receipt Date: 20231130
  Transmission Date: 20240110
  Serious: Yes (Hospitalization)
  Sender: FDA-Public Use
  Company Number: JP-KYOWAKIRIN-2023KK015090

PATIENT

DRUGS (2)
  1. CRYSVITA [Suspect]
     Active Substance: BUROSUMAB-TWZA
     Indication: Hereditary hypophosphataemic rickets
     Dosage: 70 MG, (ONE DOSE)
     Route: 058
     Dates: start: 20230920, end: 20230920
  2. EVOCALCET [Suspect]
     Active Substance: EVOCALCET
     Indication: Hypercalcaemia
     Dosage: 10 MG
     Route: 048

REACTIONS (2)
  - Hypercalcaemia [Recovering/Resolving]
  - Off label use [Unknown]

NARRATIVE: CASE EVENT DATE: 20230926
